FAERS Safety Report 8395179-3 (Version None)
Quarter: 2012Q2

REPORT INFORMATION
  Report Type: 
  Country: None (occurrence: None)
  Receive Date: 20120530
  Receipt Date: 20120521
  Transmission Date: 20120825
  Serious: Yes (Other)
  Sender: FDA-Public Use
  Company Number: US-ROXANE LABORATORIES, INC.-2012-RO-01281RO

PATIENT
  Age: 66 Year
  Sex: Male

DRUGS (7)
  1. ALLOPURINOL [Suspect]
     Indication: PROPHYLAXIS
  2. RASBURICASE [Suspect]
     Indication: PROPHYLAXIS
  3. FAVOPIRIDOL [Suspect]
     Indication: HAIRY CELL LEUKAEMIA
     Route: 042
     Dates: start: 20090730
  4. FAVOPIRIDOL [Suspect]
     Route: 042
  5. RAMIPRIL [Suspect]
  6. DEXAMETHASONE [Suspect]
     Indication: PROPHYLAXIS
  7. FAVOPIRIDOL [Suspect]
     Route: 042
     Dates: start: 20091201

REACTIONS (4)
  - DIARRHOEA [None]
  - BALANCE DISORDER [None]
  - HYPERKALAEMIA [None]
  - HAEMOGLOBIN DECREASED [None]
